FAERS Safety Report 7954351-4 (Version None)
Quarter: 2011Q4

REPORT INFORMATION
  Report Type: 
  Country: None (occurrence: None)
  Receive Date: 20111202
  Receipt Date: 20111121
  Transmission Date: 20120403
  Serious: Yes (Life-Threatening, Hospitalization)
  Sender: FDA-Public Use
  Company Number: DE-JNJFOC-20111108928

PATIENT
  Sex: Male

DRUGS (2)
  1. REMICADE [Suspect]
     Indication: ANKYLOSING SPONDYLITIS
     Route: 042
     Dates: start: 20080101, end: 20100101
  2. GOLIMUMAB [Concomitant]
     Indication: ANKYLOSING SPONDYLITIS
     Route: 042
     Dates: start: 20110101, end: 20110101

REACTIONS (1)
  - MULTIPLE MYELOMA [None]
